FAERS Safety Report 6264549-1 (Version None)
Quarter: 2009Q3

REPORT INFORMATION
  Report Type: 
  Country: None (occurrence: None)
  Receive Date: 20090710
  Receipt Date: 20090619
  Transmission Date: 20100115
  Serious: Yes (Hospitalization)
  Sender: FDA-Public Use
  Company Number: GB-ALLERGAN-0909487US

PATIENT
  Age: 53 Year
  Weight: 102.95 kg

DRUGS (2)
  1. BOTULINUM TOXIN TYPE A [Suspect]
     Indication: HYPERTONIC BLADDER
     Dosage: 200 UNITS, SINGLE
     Route: 030
     Dates: start: 20090212, end: 20090212
  2. BLINDED PLACEBO [Suspect]
     Indication: HYPERTONIC BLADDER
     Dosage: 200 UNITS, SINGLE
     Route: 030
     Dates: start: 20090212, end: 20090212

REACTIONS (1)
  - RENAL PAIN [None]
